FAERS Safety Report 18679334 (Version 1)
Quarter: 2020Q4

REPORT INFORMATION
  Report Type: Spontaneous
  Country: NL (occurrence: NL)
  Receive Date: 20201230
  Receipt Date: 20201230
  Transmission Date: 20210114
  Serious: Yes (Other)
  Sender: FDA-Public Use
  Company Number: NL-SA-2020SA373617

PATIENT

DRUGS (2)
  1. CLOMIFENE CITRATE [Suspect]
     Active Substance: CLOMIPHENE
     Indication: OVULATION INDUCTION
     Dosage: 1XDAY 1 PIECE , 25 MG
     Dates: start: 20201121
  2. NOVORAPID [Concomitant]
     Active Substance: INSULIN ASPART
     Dosage: SOLUTION FOR INJECTION, 100 UNITS/ ML (UNITS PER MILLILITER)

REACTIONS (1)
  - Diabetes mellitus inadequate control [Recovering/Resolving]
